FAERS Safety Report 10185734 (Version 2)
Quarter: 2014Q2

REPORT INFORMATION
  Report Type: Report from Study
  Country: US (occurrence: US)
  Receive Date: 20140521
  Receipt Date: 20140527
  Transmission Date: 20141212
  Serious: Yes (Death, Hospitalization, Other)
  Sender: FDA-Public Use
  Company Number: PHEH2014US010141

PATIENT
  Age: 61 Year
  Sex: Female

DRUGS (5)
  1. GILENYA [Suspect]
     Indication: MULTIPLE SCLEROSIS
     Dosage: 0.5 MG, QD
     Route: 048
     Dates: start: 20110420, end: 201402
  2. HYDROCHLOROTHIAZIDE [Concomitant]
     Indication: BLOOD PRESSURE INCREASED
     Dosage: 1 DF, QD
     Route: 048
     Dates: start: 2010
  3. TIZANIDINE [Concomitant]
     Indication: MUSCLE SPASTICITY
     Dosage: 1 DF, TID
     Route: 048
     Dates: start: 2013
  4. TRAMADOL [Concomitant]
     Indication: PAIN
     Dosage: 1 DF, TID
     Route: 048
     Dates: start: 2011
  5. ANTIHYPERTENSIVES [Concomitant]

REACTIONS (26)
  - Cardiac failure [Fatal]
  - Electrocardiogram T wave abnormal [Fatal]
  - Ejection fraction decreased [Fatal]
  - Myocardial necrosis marker increased [Unknown]
  - Transient ischaemic attack [Unknown]
  - General physical health deterioration [Unknown]
  - Cerebrovascular accident [Unknown]
  - Cerebral ischaemia [Unknown]
  - Incoherent [Unknown]
  - Lethargy [Unknown]
  - Unresponsive to stimuli [Unknown]
  - Renal failure acute [Unknown]
  - Loss of consciousness [Unknown]
  - Cognitive disorder [Unknown]
  - Confusional state [Unknown]
  - Disorientation [Unknown]
  - Sensory loss [Unknown]
  - Hypokinesia [Unknown]
  - Aphasia [Unknown]
  - Coordination abnormal [Unknown]
  - Gait disturbance [Unknown]
  - Balance disorder [Unknown]
  - Fall [Unknown]
  - Dysarthria [Unknown]
  - Speech disorder [Unknown]
  - Asthenia [Unknown]
